FAERS Safety Report 5835510-3 (Version None)
Quarter: 2008Q3

REPORT INFORMATION
  Report Type: 
  Country: None (occurrence: None)
  Receive Date: 20080806
  Receipt Date: 20080729
  Transmission Date: 20090109
  Serious: Yes (Hospitalization, Congenital Anomaly)
  Sender: FDA-Public Use
  Company Number: A0684439A

PATIENT
  Sex: Male

DRUGS (14)
  1. PAXIL [Suspect]
     Indication: FIBROMYALGIA
     Dosage: 10MG PER DAY
     Dates: start: 19990911, end: 20000601
  2. VITAMIN TAB [Concomitant]
     Indication: PREGNANCY
     Dates: start: 20000201, end: 20001201
  3. CELEBREX [Concomitant]
     Indication: FIBROMYALGIA
     Dates: start: 19990101, end: 20000101
  4. AMBIEN [Concomitant]
     Indication: FIBROMYALGIA
     Dates: start: 19990101, end: 20000101
  5. ULTRAM [Concomitant]
     Indication: FIBROMYALGIA
     Dates: start: 19990101, end: 20000101
  6. DIPHENOXYLATE HCL + ATROPINE SULFATE [Concomitant]
     Dates: start: 20001101
  7. ZITHROMAX [Concomitant]
     Dates: start: 20001101
  8. GUAIFENESIN + CODEINE [Concomitant]
     Dates: start: 20001101
  9. LOPERAMIDE HCL [Concomitant]
     Dates: start: 20001101
  10. ACETAMINOPHEN #3 [Concomitant]
     Dates: start: 20000601
  11. DOCUSATE SODIUM [Concomitant]
     Dates: start: 20001201
  12. BUTALBITAL [Concomitant]
     Dates: start: 20000201
  13. CLARITIN [Concomitant]
     Dates: start: 20001001
  14. CEPHALEXIN [Concomitant]
     Dates: start: 20001001

REACTIONS (12)
  - AORTIC ANEURYSM [None]
  - AORTIC VALVE INCOMPETENCE [None]
  - BICUSPID AORTIC VALVE [None]
  - CARDIAC MURMUR [None]
  - CONGENITAL ANOMALY [None]
  - CONGENITAL AORTIC VALVE STENOSIS [None]
  - DRUG EXPOSURE DURING PREGNANCY [None]
  - MITRAL VALVE INCOMPETENCE [None]
  - PERICARDIAL EFFUSION [None]
  - POSTPERICARDIOTOMY SYNDROME [None]
  - PULMONARY VALVE STENOSIS [None]
  - VENTRICULAR HYPERTROPHY [None]
